FAERS Safety Report 25276413 (Version 1)
Quarter: 2025Q2

REPORT INFORMATION
  Report Type: Spontaneous
  Country: US (occurrence: US)
  Receive Date: 20250507
  Receipt Date: 20250507
  Transmission Date: 20250716
  Serious: No
  Sender: OTSUKA
  Company Number: US-MMM-Otsuka-2KUP6R5O

PATIENT
  Sex: Male
  Weight: 76.19 kg

DRUGS (2)
  1. ABILIFY ASIMTUFII [Suspect]
     Active Substance: ARIPIPRAZOLE
     Indication: Schizophrenia
     Route: 065
  2. ABILIFY MAINTENA [Concomitant]
     Active Substance: ARIPIPRAZOLE
     Indication: Schizophrenia
     Route: 065
     Dates: start: 20240805, end: 20250106

REACTIONS (2)
  - Product dose omission issue [Not Recovered/Not Resolved]
  - Product availability issue [Unknown]
